FAERS Safety Report 21182354 (Version 3)
Quarter: 2022Q4

REPORT INFORMATION
  Report Type: Report from Study
  Country: US (occurrence: US)
  Receive Date: 20220807
  Receipt Date: 20221014
  Transmission Date: 20230113
  Serious: Yes (Other)
  Sender: FDA-Public Use
  Company Number: US-ABBVIE-22K-163-4491759-00

PATIENT
  Sex: Female
  Weight: 59.42 kg

DRUGS (10)
  1. HUMIRA [Suspect]
     Active Substance: ADALIMUMAB
     Indication: Psoriatic arthropathy
     Dosage: 40 MG
     Route: 058
     Dates: start: 2015, end: 202208
  2. HUMIRA [Suspect]
     Active Substance: ADALIMUMAB
     Indication: Psoriasis
     Dosage: 40 MG
     Route: 058
     Dates: start: 202209
  3. CALCIUM [Concomitant]
     Active Substance: CALCIUM
     Indication: Supplementation therapy
  4. VITAMIN D3 [Concomitant]
     Active Substance: CHOLECALCIFEROL
     Indication: Supplementation therapy
  5. ATENOLOL [Concomitant]
     Active Substance: ATENOLOL
     Indication: Cardiac disorder
     Dosage: HALF TABLET
  6. SIMVASTATIN [Concomitant]
     Active Substance: SIMVASTATIN
     Indication: Product used for unknown indication
  7. MODERNA COVID-19 VACCINE [Concomitant]
     Active Substance: ELASOMERAN
     Indication: COVID-19 immunisation
     Dosage: BOOSTER DOSE, ONCE
     Route: 030
     Dates: start: 20211025, end: 20211025
  8. MODERNA COVID-19 VACCINE [Concomitant]
     Active Substance: ELASOMERAN
     Indication: COVID-19 immunisation
     Dosage: 1ST DOSE, ONCE
     Route: 030
     Dates: start: 20210322, end: 20210322
  9. MODERNA COVID-19 VACCINE [Concomitant]
     Active Substance: ELASOMERAN
     Indication: COVID-19 immunisation
     Dosage: 2ND DOSE, ONCE
     Route: 030
     Dates: start: 20210927, end: 20210927
  10. ASPIRIN [Concomitant]
     Active Substance: ASPIRIN
     Indication: Cardiac disorder

REACTIONS (17)
  - Eye operation [Recovered/Resolved]
  - Eyelid pain [Recovered/Resolved]
  - Extraocular muscle disorder [Recovering/Resolving]
  - Procedural pain [Recovered/Resolved]
  - Post procedural haemorrhage [Unknown]
  - Visual impairment [Unknown]
  - Wrong technique in product usage process [Not Recovered/Not Resolved]
  - Arthropathy [Recovering/Resolving]
  - Immunodeficiency [Not Recovered/Not Resolved]
  - Eyelid ptosis [Unknown]
  - Arthritis [Not Recovered/Not Resolved]
  - Adverse reaction [Not Recovered/Not Resolved]
  - Injection site haemorrhage [Unknown]
  - Unevaluable event [Not Recovered/Not Resolved]
  - Device issue [Not Recovered/Not Resolved]
  - Haemorrhage [Unknown]
  - Eye disorder [Unknown]

NARRATIVE: CASE EVENT DATE: 20220101
